FAERS Safety Report 25750944 (Version 2)
Quarter: 2025Q4

REPORT INFORMATION
  Report Type: Spontaneous
  Country: US (occurrence: US)
  Receive Date: 20250902
  Receipt Date: 20251124
  Transmission Date: 20260118
  Serious: Yes (Other)
  Sender: BAYER HEALTHCARE PHARMACEUTICALS INC.
  Company Number: US-BAYER-2025A114154

PATIENT
  Sex: Male

DRUGS (1)
  1. KOVALTRY [Suspect]
     Active Substance: ANTIHEMOPHILIC FACTOR, HUMAN RECOMBINANT
     Indication: Factor VIII deficiency
     Dosage: KOVALTRY 2000 IU: INFUSE~2000 UNITS
     Route: 042
     Dates: start: 202102

REACTIONS (1)
  - Spontaneous haemorrhage [None]

NARRATIVE: CASE EVENT DATE: 20250101
